FAERS Safety Report 9840235 (Version 1)
Quarter: 2013Q4

REPORT INFORMATION
  Report Type: Spontaneous
  Country: US (occurrence: None)
  Receive Date: 20131211
  Receipt Date: 20131211
  Transmission Date: 20140711
  Serious: Yes (Other)
  Sender: FDA-Public Use
  Company Number: ALL1-2012-03926

PATIENT
  Age: 12 Year
  Sex: Male
  Weight: 47.2 kg

DRUGS (4)
  1. VYVANSE (LISDEXAMFETAMINE DIMESYLATE) CAPSULE? [Suspect]
     Indication: ATTENTION DEFICIT/HYPERACTIVITY DISORDER
     Dosage: 30 MG, 1X/DAY:QD, ORAL
     Route: 048
     Dates: start: 201203, end: 2012
  2. CONCERTA (METHYLPHENIDATE HYDROCHLORIDE) [Concomitant]
  3. CONCERTA (METHYPHENIDATE HYDROCHLORIDE) [Concomitant]
  4. CONCERTA (METHYPHENIDATE HYDROCHLORIDE) [Concomitant]

REACTIONS (2)
  - Hypersensitivity [None]
  - Rash [None]
